FAERS Safety Report 11184315 (Version 3)
Quarter: 2015Q3

REPORT INFORMATION
  Report Type: Spontaneous
  Country: US (occurrence: US)
  Receive Date: 20150612
  Receipt Date: 20150714
  Transmission Date: 20151125
  Serious: Yes (Hospitalization)
  Sender: FDA-Public Use
  Company Number: US-UNITED THERAPEUTICS-UNT-2015-006754

PATIENT
  Age: 41 Year
  Sex: Female
  Weight: 68.48 kg

DRUGS (7)
  1. REMODULIN [Suspect]
     Active Substance: TREPROSTINIL
     Indication: PULMONARY HYPERTENSION
     Dosage: 0.066 ?G/KG, CONTINUING
     Route: 041
     Dates: start: 20110615
  2. ORENITRAM [Suspect]
     Active Substance: TREPROSTINIL
     Dosage: 9.25 MG, TID
     Route: 048
     Dates: start: 20150529
  3. ORENITRAM [Suspect]
     Active Substance: TREPROSTINIL
     Dosage: 9.25 MG, TID
     Route: 048
  4. ORENITRAM [Suspect]
     Active Substance: TREPROSTINIL
     Indication: PULMONARY HYPERTENSION
     Dosage: 9.25 MG, TID
     Route: 048
     Dates: start: 20150429
  5. ORENITRAM [Suspect]
     Active Substance: TREPROSTINIL
     Dosage: 9.25 MG, TID
     Route: 048
     Dates: start: 20150529
  6. COUMADIN [Concomitant]
     Active Substance: WARFARIN SODIUM
     Indication: PRODUCT USED FOR UNKNOWN INDICATION
  7. ORENITRAM [Suspect]
     Active Substance: TREPROSTINIL
     Dosage: 9.25 MG, TID
     Route: 048

REACTIONS (4)
  - Nervousness [Unknown]
  - Haemoglobin decreased [Unknown]
  - Malaise [Unknown]
  - Feeling jittery [Unknown]

NARRATIVE: CASE EVENT DATE: 2015
